FAERS Safety Report 25763861 (Version 1)
Quarter: 2025Q3

REPORT INFORMATION
  Report Type: Spontaneous
  Country: US (occurrence: US)
  Receive Date: 20250905
  Receipt Date: 20250905
  Transmission Date: 20251020
  Serious: No
  Sender: DOMPE FARMACEUTICI
  Company Number: US-FARMAPROD-202412-4092

PATIENT
  Sex: Female
  Weight: 85.73 kg

DRUGS (12)
  1. OXERVATE [Suspect]
     Active Substance: CENEGERMIN-BKBJ
     Indication: Neurotrophic keratopathy
     Route: 047
     Dates: start: 20241122
  2. VEVYE [Concomitant]
     Active Substance: CYCLOSPORINE
  3. VITAMIN C [Concomitant]
     Active Substance: ASCORBIC ACID
  4. VITAMIN D2 [Concomitant]
     Active Substance: ERGOCALCIFEROL
  5. METHOTREXATE [Concomitant]
     Active Substance: METHOTREXATE
  6. SYNTHROID [Concomitant]
     Active Substance: LEVOTHYROXINE SODIUM
  7. BREO ELLIPTA [Concomitant]
     Active Substance: FLUTICASONE FUROATE\VILANTEROL TRIFENATATE
  8. FOLIC ACID [Concomitant]
     Active Substance: FOLIC ACID
  9. LEVOTHYROXINE [Concomitant]
     Active Substance: LEVOTHYROXINE
  10. METHOTREXATE [Concomitant]
     Active Substance: METHOTREXATE
  11. SELENIUM [Concomitant]
     Active Substance: SELENIUM
  12. BIOTIN [Concomitant]
     Active Substance: BIOTIN

REACTIONS (4)
  - Eye pain [Unknown]
  - Product dose omission issue [Not Recovered/Not Resolved]
  - Lacrimation increased [Unknown]
  - Intentional product misuse [Unknown]
